FAERS Safety Report 5112772-1 (Version None)
Quarter: 2006Q3

REPORT INFORMATION
  Report Type: 
  Country: None (occurrence: None)
  Receive Date: 20060922
  Receipt Date: 20060913
  Transmission Date: 20061208
  Serious: Yes (Death)
  Sender: FDA-Public Use
  Company Number: NL-AVENTIS-200619476GDDC

PATIENT
  Age: 77 Year
  Sex: Male

DRUGS (15)
  1. DOCETAXEL [Suspect]
     Indication: PROSTATE CANCER
     Route: 042
     Dates: start: 20060807, end: 20060807
  2. PREDNISONE [Suspect]
     Indication: PROSTATE CANCER
     Route: 048
     Dates: start: 20060807, end: 20060810
  3. DEXAMETHASONE TAB [Concomitant]
     Dates: start: 20060807, end: 20060807
  4. METOPROLOL [Concomitant]
     Dates: end: 20060810
  5. METOPROLOL [Concomitant]
     Dates: start: 20060808, end: 20060808
  6. METOPROLOL [Concomitant]
     Dates: start: 20060808, end: 20060808
  7. HEPARIN [Concomitant]
     Dosage: DOSE: 20,000 UNITS CONTINUOUS
     Dates: start: 20060807, end: 20060807
  8. NITROGLYCERIN [Concomitant]
     Dates: start: 20060807, end: 20060807
  9. DIPYRIDAMOLE RETARD [Concomitant]
     Dates: start: 20060807, end: 20060810
  10. ASPIRIN [Concomitant]
     Dates: start: 20060807, end: 20060810
  11. ISOSORBIDE MONONITRATE [Concomitant]
     Dates: start: 20060807, end: 20060810
  12. OXYCODON [Concomitant]
     Dates: start: 20060807, end: 20060810
  13. ESOMEPRAZOLE MAGNESIUM [Concomitant]
     Dates: start: 20060807, end: 20060810
  14. ATORVASTATIN CALCIUM [Concomitant]
     Dates: start: 20060802, end: 20060810
  15. DILTIAZEM RETARD [Concomitant]
     Dates: start: 20060808, end: 20060810

REACTIONS (3)
  - CHEST PAIN [None]
  - ELECTROCARDIOGRAM ST SEGMENT ELEVATION [None]
  - MYOCARDIAL INFARCTION [None]
